FAERS Safety Report 4661226-5 (Version None)
Quarter: 2005Q2

REPORT INFORMATION
  Report Type: 
  Country: None (occurrence: None)
  Receive Date: 20050511
  Receipt Date: 20050426
  Transmission Date: 20051028
  Serious: Yes (Disabling)
  Sender: FDA-Public Use
  Company Number: 214035

PATIENT
  Age: 39 Year
  Sex: Female

DRUGS (1)
  1. RITUXAN [Suspect]
     Dosage: INTRAVENOUS
     Route: 042

REACTIONS (1)
  - NEUTROPENIA [None]
